FAERS Safety Report 9844390 (Version 1)
Quarter: 2014Q1

REPORT INFORMATION
  Report Type: Spontaneous
  Country: KR (occurrence: KR)
  Receive Date: 20140127
  Receipt Date: 20140127
  Transmission Date: 20141002
  Serious: Yes (Hospitalization)
  Sender: FDA-Public Use
  Company Number: PHHY2014KR005082

PATIENT
  Age: 33 Year
  Sex: Female

DRUGS (4)
  1. ETHAMBUTOL [Suspect]
  2. ISONIAZID [Suspect]
  3. RIFAMPICIN [Suspect]
  4. PYRAZINAMIDE [Suspect]

REACTIONS (4)
  - Splenic rupture [Recovering/Resolving]
  - Abdominal pain [Recovering/Resolving]
  - Splenic abscess [Recovering/Resolving]
  - Paradoxical drug reaction [Recovering/Resolving]
